FAERS Safety Report 13189789 (Version 1)
Quarter: 2017Q1

REPORT INFORMATION
  Report Type: Spontaneous
  Country: CH (occurrence: CH)
  Receive Date: 20170206
  Receipt Date: 20170206
  Transmission Date: 20170428
  Serious: Yes (Hospitalization)
  Sender: FDA-Public Use
  Company Number: CH-TEVA-734736ISR

PATIENT
  Age: 71 Year
  Sex: Female
  Weight: 69.4 kg

DRUGS (8)
  1. PANTOZOL [Concomitant]
     Active Substance: PANTOPRAZOLE SODIUM
     Dosage: 40 MILLIGRAM DAILY; STRENGTH REPORTED AS: 40 MG, START DATE NOT REPORTED
     Route: 048
  2. ELTROXIN LF [Concomitant]
     Dosage: START DATE NOT REPORTED
     Route: 048
  3. LYRICA [Concomitant]
     Active Substance: PREGABALIN
     Dosage: 225 MILLIGRAM DAILY; START DATE NOT REPORTED, STRENGTH 75 MG, REGIMEN: 1-0-0-2
     Route: 048
  4. TRAMADOL MEPHA KAPSELN [Suspect]
     Active Substance: TRAMADOL
     Dosage: 100 MILLIGRAM DAILY; START DATE NOT REPORTED
     Route: 048
     Dates: end: 201611
  5. CONCOR [Concomitant]
     Active Substance: BISOPROLOL FUMARATE
     Dosage: 10 MILLIGRAM DAILY; STRENGTH REPORTED AS: 10 MG, START DATE NOT REPORTED
     Route: 048
  6. XANAX [Concomitant]
     Active Substance: ALPRAZOLAM
     Dosage: 2 MILLIGRAM DAILY; START DATE NOT REPORTED
     Route: 048
  7. AMLODIPINE [Concomitant]
     Active Substance: AMLODIPINE BESYLATE
     Dosage: 10 MILLIGRAM DAILY; STRENGTH REPORTED AS: 12.79 MG, START DATE NOT REPORTED
     Route: 048
  8. EFEXOR [Concomitant]
     Active Substance: VENLAFAXINE HYDROCHLORIDE
     Dosage: 150 MILLIGRAM DAILY; START DATE NOT REPORTED, STRENGTH 150 MG
     Route: 048
     Dates: end: 201611

REACTIONS (3)
  - Confusional state [Recovering/Resolving]
  - Aphasia [Recovering/Resolving]
  - Memory impairment [Recovering/Resolving]

NARRATIVE: CASE EVENT DATE: 201608
